FAERS Safety Report 15765039 (Version 2)
Quarter: 2019Q1

REPORT INFORMATION
  Report Type: Spontaneous
  Country: US (occurrence: US)
  Receive Date: 20181227
  Receipt Date: 20190102
  Transmission Date: 20190417
  Serious: No
  Sender: FDA-Public Use
  Company Number: US-PCCINC-2018-PEL-003393

PATIENT

DRUGS (6)
  1. ZOLPIDEM [Concomitant]
     Active Substance: ZOLPIDEM\ZOLPIDEM TARTRATE
     Dosage: 10 MG (TITER), PRN
     Route: 048
  2. SALINE                             /00075401/ [Concomitant]
     Active Substance: SODIUM CHLORIDE
     Dosage: 24.03 MICROGRAM, QD (500 MCG/ML)
  3. GABLOFEN [Suspect]
     Active Substance: BACLOFEN
     Dosage: 159.96 ?G/ML, QD (500MCG/ML)
  4. GABLOFEN [Suspect]
     Active Substance: BACLOFEN
     Dosage: 50 MICROGRAM
     Route: 037
     Dates: start: 20170713
  5. GABLOFEN [Suspect]
     Active Substance: BACLOFEN
     Indication: GAIT DISTURBANCE
     Dosage: 129.89 ?G/ML, QD (500MCG/ML)
     Route: 037
     Dates: start: 20170621
  6. GABLOFEN [Suspect]
     Active Substance: BACLOFEN
     Indication: MUSCLE SPASTICITY
     Dosage: 280 ?G/ML, QD
     Route: 037

REACTIONS (7)
  - Gait disturbance [Recovering/Resolving]
  - Insomnia [Unknown]
  - Drug ineffective [Unknown]
  - Muscle spasticity [Recovering/Resolving]
  - Device issue [Unknown]
  - Pain in extremity [Recovering/Resolving]
  - Feeling abnormal [Unknown]

NARRATIVE: CASE EVENT DATE: 2016
